FAERS Safety Report 17685301 (Version 1)
Quarter: 2020Q2

REPORT INFORMATION
  Report Type: Spontaneous
  Country: US (occurrence: US)
  Receive Date: 20200420
  Receipt Date: 20200420
  Transmission Date: 20200714
  Serious: Yes (Hospitalization)
  Sender: FDA-Public Use
  Company Number: US-EPIC PHARMA LLC-2020EPC00129

PATIENT
  Age: 64 Year
  Sex: Female

DRUGS (2)
  1. AMLODIPINE [Suspect]
     Active Substance: AMLODIPINE BESYLATE
     Route: 048
  2. LEVOTHYROXINE. [Suspect]
     Active Substance: LEVOTHYROXINE
     Route: 048

REACTIONS (10)
  - Leukocytosis [Unknown]
  - Acute kidney injury [Unknown]
  - Liver injury [Unknown]
  - Metabolic acidosis [Unknown]
  - Nodal rhythm [Unknown]
  - Rhabdomyolysis [Unknown]
  - Shock [Unknown]
  - Overdose [Unknown]
  - Toxicity to various agents [Unknown]
  - Dyspnoea [Unknown]
